FAERS Safety Report 6801442-7 (Version None)
Quarter: 2010Q2

REPORT INFORMATION
  Report Type: 
  Country: None (occurrence: None)
  Receive Date: 20100629
  Receipt Date: 20100617
  Transmission Date: 20101027
  Serious: Yes (Disabling)
  Sender: FDA-Public Use
  Company Number: DE-ROCHE-706870

PATIENT
  Sex: Male
  Weight: 76 kg

DRUGS (4)
  1. TOCILIZUMAB [Suspect]
     Indication: RHEUMATOID ARTHRITIS
     Route: 042
     Dates: start: 20090421
  2. TOCILIZUMAB [Suspect]
     Dosage: LAST ADMINISTRATION OF 400 MG ON 16 FEB 2010
     Route: 042
     Dates: end: 20100216
  3. TOCILIZUMAB [Suspect]
     Dosage: GIVEN ON 23 MAR 2010
     Route: 042
     Dates: start: 20100323
  4. CORTICOSTEROIDS [Suspect]
     Indication: RHEUMATOID ARTHRITIS
     Route: 048

REACTIONS (3)
  - CELLULITIS [None]
  - GANGRENE [None]
  - TOE AMPUTATION [None]
